FAERS Safety Report 9159889 (Version 1)
Quarter: 2013Q1

REPORT INFORMATION
  Report Type: Spontaneous
  Country: US (occurrence: None)
  Receive Date: 20130219
  Receipt Date: 20130219
  Transmission Date: 20140127
  Serious: Yes (Hospitalization)
  Sender: FDA-Public Use
  Company Number: CLCY20130024

PATIENT
  Age: 8 Decade
  Sex: Male

DRUGS (1)
  1. COLCRYS 0.6 MG [Suspect]
     Indication: GOUT
     Route: 048

REACTIONS (2)
  - Diarrhoea [None]
  - Malaise [None]
